FAERS Safety Report 4698383-0 (Version None)
Quarter: 2005Q2

REPORT INFORMATION
  Report Type: 
  Country: None (occurrence: None)
  Receive Date: 20050623
  Receipt Date: 20050617
  Transmission Date: 20051028
  Serious: Yes (Hospitalization)
  Sender: FDA-Public Use
  Company Number: 200515764GDDC

PATIENT
  Age: 15 Year
  Sex: Female

DRUGS (3)
  1. LANTUS [Suspect]
     Dates: end: 20050617
  2. NOVORAPID [Suspect]
     Indication: DIABETES MELLITUS INSULIN-DEPENDENT
     Dates: end: 20050617
  3. OXYTETRACYCLINE [Concomitant]
     Indication: ACNE
     Dosage: FREQUENCY: BEFORE MEALS

REACTIONS (3)
  - ANGIONEUROTIC OEDEMA [None]
  - GENERALISED ERYTHEMA [None]
  - WEIGHT INCREASED [None]
